FAERS Safety Report 23932501 (Version 1)
Quarter: 2024Q2

REPORT INFORMATION
  Report Type: Report from Study
  Country: US (occurrence: US)
  Receive Date: 20240603
  Receipt Date: 20240603
  Transmission Date: 20240716
  Serious: Yes (Other)
  Sender: FDA-Public Use
  Company Number: US-AMGEN-USASL2024105158

PATIENT
  Age: 64 Year
  Sex: Male

DRUGS (3)
  1. KRYSTEXXA [Suspect]
     Active Substance: PEGLOTICASE
     Indication: Product used for unknown indication
     Dosage: UNK, Q2WK (EVERY 2 WEEKS)
     Route: 042
     Dates: start: 20240426
  2. KRYSTEXXA [Suspect]
     Active Substance: PEGLOTICASE
     Dosage: UNK, Q2WK (EVERY 2 WEEKS)
     Route: 042
     Dates: start: 2024, end: 20240524
  3. BENADRYL [Concomitant]
     Active Substance: DIPHENHYDRAMINE HYDROCHLORIDE
     Indication: Product used for unknown indication
     Dosage: UNK
     Route: 042
     Dates: start: 2024

REACTIONS (2)
  - Arrhythmia [Recovering/Resolving]
  - Pruritus [Recovering/Resolving]

NARRATIVE: CASE EVENT DATE: 20240101
